FAERS Safety Report 8302542-5 (Version None)
Quarter: 2012Q2

REPORT INFORMATION
  Report Type: 
  Country: None (occurrence: None)
  Receive Date: 20120411
  Receipt Date: 20120321
  Transmission Date: 20120825
  Serious: Yes (Life-Threatening, Hospitalization)
  Sender: FDA-Public Use
  Company Number: 2011AA01375

PATIENT
  Age: 65 Year
  Sex: Female

DRUGS (8)
  1. NEURONTIN [Concomitant]
  2. TEGRETOL [Concomitant]
  3. SPIRONOLACTONE [Concomitant]
  4. RANITIDINE HYDROCHLORIDE [Concomitant]
  5. NEBIVOLOL HCL [Concomitant]
  6. PHARMALGEN (802) VESPULA SPP. /WESPENGIFT/VENIN DE GUEPE (PHARMALGEN ( [Suspect]
     Dosage: 100 MICROGRAMS;WEEKLY
     Route: 058
     Dates: start: 20070301, end: 20111205
  7. OMEZOL (OMEPRAZOLE) [Concomitant]
  8. IBANDRONIC ACID (IBANDRONIC ACID) [Concomitant]

REACTIONS (10)
  - ANAPHYLACTIC SHOCK [None]
  - SUBARACHNOID HAEMORRHAGE [None]
  - FEELING HOT [None]
  - VOMITING [None]
  - LOSS OF CONSCIOUSNESS [None]
  - EPILEPSY [None]
  - CARDIO-RESPIRATORY ARREST [None]
  - PARAESTHESIA [None]
  - NAUSEA [None]
  - RIB FRACTURE [None]
